FAERS Safety Report 5239366-1 (Version None)
Quarter: 2007Q1

REPORT INFORMATION
  Report Type: 
  Country: None (occurrence: None)
  Receive Date: 20070214
  Receipt Date: 20070214
  Transmission Date: 20070707
  Serious: Yes (Hospitalization)
  Sender: FDA-Public Use
  Company Number: None

PATIENT
  Age: 61 Year
  Sex: Male
  Weight: 122.4712 kg

DRUGS (2)
  1. RISPERIDONE 0.5MG HS [Suspect]
     Dosage: 0.5MG HS ORAL
     Route: 048
     Dates: start: 20061005, end: 20061211
  2. VENLAFAXINE HCL [Suspect]
     Indication: DEPRESSION
     Dosage: 75MG BID ORAL
     Route: 048
     Dates: start: 20060905, end: 20061211

REACTIONS (6)
  - ABASIA [None]
  - ASTHENIA [None]
  - DIZZINESS [None]
  - DYSSTASIA [None]
  - HEART RATE INCREASED [None]
  - ORTHOSTATIC HYPOTENSION [None]
